FAERS Safety Report 4600488-7 (Version None)
Quarter: 2005Q1

REPORT INFORMATION
  Report Type: 
  Country: None (occurrence: None)
  Receive Date: 20050302
  Receipt Date: 20050224
  Transmission Date: 20050727
  Serious: Yes (Hospitalization)
  Sender: FDA-Public Use
  Company Number: E2005-00795

PATIENT
  Age: 22 Year
  Sex: Male

DRUGS (2)
  1. TUBERSOL [Suspect]
     Indication: TUBERCULIN TEST
     Dosage: 10.0 I.U. I.D.
     Route: 023
     Dates: start: 20041203
  2. MENOMUNE            (MENINGOCOCCAL A, C, Y + W135 VACCINE) [Suspect]
     Indication: IMMUNISATION
     Dosage: I.M., NR
     Dates: start: 20041201

REACTIONS (3)
  - ERYTHEMA MULTIFORME [None]
  - LYMPHOCYTIC INFILTRATION [None]
  - LYMPHOID TISSUE HYPERPLASIA [None]
